FAERS Safety Report 25544083 (Version 1)
Quarter: 2025Q3

REPORT INFORMATION
  Report Type: Spontaneous
  Country: EU (occurrence: EU)
  Receive Date: 20250711
  Receipt Date: 20250711
  Transmission Date: 20251020
  Serious: Yes (Life-Threatening, Hospitalization, Disabling, Other)
  Sender: BRISTOL-MYERS SQUIBB COMPANY
  Company Number: None

PATIENT
  Age: 59 Year
  Sex: Male
  Weight: 80 kg

DRUGS (4)
  1. YERVOY [Suspect]
     Active Substance: IPILIMUMAB
     Indication: Metastatic malignant melanoma
     Dosage: THE PATIENT UNDERWENT 4 CYCLES OF IPILIMUMAB: 21/10/2024 200 MG, 11/11/2024 200 MG, 23/12/2024 200 M
     Route: 042
     Dates: start: 20241021
  2. YERVOY [Suspect]
     Active Substance: IPILIMUMAB
     Dosage: THE PATIENT UNDERWENT 4 CYCLES OF IPILIMUMAB: 21/10/2024 200 MG, 11/11/2024 200 MG, 23/12/2024 200 M
     Route: 042
     Dates: start: 20241021
  3. YERVOY [Suspect]
     Active Substance: IPILIMUMAB
     Dosage: THE PATIENT UNDERWENT 4 CYCLES OF IPILIMUMAB: 21/10/2024 200 MG, 11/11/2024 200 MG, 23/12/2024 200 M
     Route: 042
     Dates: start: 20241021
  4. YERVOY [Suspect]
     Active Substance: IPILIMUMAB
     Dosage: THE PATIENT UNDERWENT 4 CYCLES OF IPILIMUMAB: 21/10/2024 200 MG, 11/11/2024 200 MG, 23/12/2024 200 M
     Route: 042
     Dates: start: 20250113

REACTIONS (4)
  - Hypophysitis [Recovered/Resolved]
  - Myositis [Recovered/Resolved]
  - Myocarditis [Recovered/Resolved]
  - Cholecystitis [Recovered/Resolved]

NARRATIVE: CASE EVENT DATE: 20250203
